FAERS Safety Report 9002937 (Version 4)
Quarter: 2013Q1

REPORT INFORMATION
  Report Type: Report from Study
  Country: ES (occurrence: ES)
  Receive Date: 20130108
  Receipt Date: 20130222
  Transmission Date: 20140127
  Serious: Yes (Hospitalization)
  Sender: FDA-Public Use
  Company Number: ES-PFIZER INC-2012334151

PATIENT
  Age: 65 Year
  Sex: Male
  Weight: 70.4 kg

DRUGS (6)
  1. TEMSIROLIMUS [Suspect]
     Indication: PROSTATE CANCER
     Dosage: 15 MG ON DAY 2 AND DAY 16 EVERY 21 DAYS
     Route: 042
     Dates: start: 20120921, end: 20121128
  2. TEMSIROLIMUS [Suspect]
     Dosage: 10 MG ON DAY 2 AND DAY 16 EVERY 21 DAYS
     Route: 042
     Dates: start: 20121219, end: 20121227
  3. DOCETAXEL [Suspect]
     Indication: PROSTATE CANCER
     Dosage: 90 MG, EVERY 3 WEEKS
     Route: 042
     Dates: start: 20120920, end: 20121226
  4. FUROSEMIDE [Concomitant]
     Indication: FLUID RETENTION
     Dosage: 20 MG, 1X/DAY
     Route: 048
     Dates: start: 20121114
  5. PREDNISONE [Concomitant]
     Indication: PROSTATE CANCER
     Dosage: 0.5 MG, 2X/DAY
     Route: 048
     Dates: start: 20120919
  6. TRAMADOL [Concomitant]
     Indication: ANALGESIC THERAPY
     Dosage: 50 MG, 3X/DAY
     Route: 048
     Dates: start: 20120917

REACTIONS (1)
  - Gastroenteritis [Recovered/Resolved]
